FAERS Safety Report 17874137 (Version 1)
Quarter: 2020Q2

REPORT INFORMATION
  Report Type: Report from Study
  Country: US (occurrence: US)
  Receive Date: 20200609
  Receipt Date: 20200609
  Transmission Date: 20200714
  Serious: Yes (Hospitalization, Other)
  Sender: FDA-Public Use
  Company Number: US-SAKK-2018SA391772AA

PATIENT

DRUGS (3)
  1. METOPROLOL TARTRATE AND HYDROCHLOROTHIAZIDE [Concomitant]
     Active Substance: HYDROCHLOROTHIAZIDE\METOPROLOL TARTRATE
     Dosage: 12.5 MG, QD
  2. ALEMTUZUMAB [Suspect]
     Active Substance: ALEMTUZUMAB
     Indication: MULTIPLE SCLEROSIS
     Dosage: 12 MG, QD
     Route: 041
     Dates: start: 20181210, end: 20181214
  3. FOSAMAX [Concomitant]
     Active Substance: ALENDRONATE SODIUM
     Indication: OSTEOPOROSIS
     Dosage: UNK, UNK

REACTIONS (14)
  - Fatigue [Recovering/Resolving]
  - Depression [Recovering/Resolving]
  - Chest pain [Recovered/Resolved]
  - Rash [Not Recovered/Not Resolved]
  - Unevaluable event [Unknown]
  - Secondary progressive multiple sclerosis [Not Recovered/Not Resolved]
  - Condition aggravated [Not Recovered/Not Resolved]
  - Hospitalisation [Unknown]
  - General physical health deterioration [Unknown]
  - Joint dislocation [Recovered/Resolved]
  - Mobility decreased [Recovering/Resolving]
  - Drug monitoring procedure not performed [Unknown]
  - Nocturia [Recovering/Resolving]
  - Joint injury [Recovered/Resolved]

NARRATIVE: CASE EVENT DATE: 20181215
